FAERS Safety Report 6187474-3 (Version None)
Quarter: 2009Q2

REPORT INFORMATION
  Report Type: 
  Country: None (occurrence: None)
  Receive Date: 20090512
  Receipt Date: 20090505
  Transmission Date: 20091009
  Serious: Yes (Other)
  Sender: FDA-Public Use
  Company Number: GB-GILEAD-2009-0021805

PATIENT
  Age: 41 Year
  Sex: Female

DRUGS (15)
  1. VIREAD [Suspect]
     Indication: HIV INFECTION
     Route: 048
  2. EPIVIR [Suspect]
     Indication: HIV INFECTION
     Route: 048
     Dates: start: 20070718
  3. NEVIRAPINE [Suspect]
     Indication: HIV INFECTION
     Route: 048
     Dates: start: 20070718
  4. ALPHA TOCOPHEROL TAB [Suspect]
     Indication: DRUG USE FOR UNKNOWN INDICATION
  5. ASCORBIC ACID [Suspect]
     Indication: DRUG USE FOR UNKNOWN INDICATION
  6. BIOTIN [Suspect]
     Indication: DRUG USE FOR UNKNOWN INDICATION
  7. CALCIUM PANTOTHENATE [Suspect]
     Indication: DRUG USE FOR UNKNOWN INDICATION
  8. CYANOCOBALAMIN [Suspect]
     Indication: DRUG USE FOR UNKNOWN INDICATION
  9. ERGOCALCIFEROL [Suspect]
     Indication: DRUG USE FOR UNKNOWN INDICATION
  10. FOLIC ACID [Suspect]
     Indication: DRUG USE FOR UNKNOWN INDICATION
  11. NICOTINAMIDE [Suspect]
     Indication: DRUG USE FOR UNKNOWN INDICATION
  12. POTASSIUM IODIDE [Suspect]
     Indication: DRUG USE FOR UNKNOWN INDICATION
  13. RETINOL ACETATE [Suspect]
     Indication: DRUG USE FOR UNKNOWN INDICATION
  14. RIBOFLAVINE [Suspect]
     Indication: DRUG USE FOR UNKNOWN INDICATION
  15. THIAMINE NITRATE [Suspect]
     Indication: DRUG USE FOR UNKNOWN INDICATION

REACTIONS (3)
  - ABORTION SPONTANEOUS [None]
  - DRUG EXPOSURE DURING PREGNANCY [None]
  - ILL-DEFINED DISORDER [None]
